FAERS Safety Report 5646897-9 (Version None)
Quarter: 2008Q1

REPORT INFORMATION
  Report Type: 
  Country: None (occurrence: None)
  Receive Date: 20080229
  Receipt Date: 20080229
  Transmission Date: 20080703
  Serious: No
  Sender: FDA-Public Use
  Company Number: None

PATIENT
  Age: 75 Year
  Sex: Female
  Weight: 68.0396 kg

DRUGS (1)
  1. SIMVASTATIN [Suspect]
     Indication: BLOOD CHOLESTEROL INCREASED
     Dosage: 40MG 1 DAILY 047
     Dates: start: 20071227, end: 20071229

REACTIONS (7)
  - DISCOMFORT [None]
  - DRUG ERUPTION [None]
  - ERYTHEMA [None]
  - FEELING HOT [None]
  - PHARYNGOLARYNGEAL PAIN [None]
  - PRURITUS [None]
  - SKIN IRRITATION [None]
